FAERS Safety Report 5232575-7 (Version None)
Quarter: 2007Q1

REPORT INFORMATION
  Report Type: 
  Country: None (occurrence: None)
  Receive Date: 20070207
  Receipt Date: 20070131
  Transmission Date: 20070707
  Serious: Yes (Death, Other)
  Sender: FDA-Public Use
  Company Number: US-AVENTIS-200619346US

PATIENT
  Age: 53 Year
  Sex: Female

DRUGS (14)
  1. LANTUS [Suspect]
     Dates: start: 20060701
  2. LANTUS [Suspect]
     Dosage: DOSE: 10-15
     Dates: start: 20061114
  3. UNKNOWN DRUG [Concomitant]
  4. PANCREASE                          /00150201/ [Concomitant]
     Dosage: DOSE: UNK
  5. ADVAIR DISKUS 100/50 [Concomitant]
     Dosage: DOSE: UNK
  6. AZMACORT [Concomitant]
     Dosage: DOSE: UNK
  7. TOPAMAX [Concomitant]
     Dosage: DOSE: UNK
  8. DEPAKOTE [Concomitant]
     Dosage: DOSE: UNK
  9. AMITRIPTYLINE HCL [Concomitant]
     Dosage: DOSE: UNK
  10. PRILOSEC                           /00661201/ [Concomitant]
     Dosage: DOSE: UNK
  11. FLONASE [Concomitant]
     Dosage: DOSE: UNK
  12. COMBIVENT                          /01033501/ [Concomitant]
     Dosage: DOSE: UNK
  13. ABILIFY [Concomitant]
     Dosage: DOSE: UNK
  14. ALLEGRA [Concomitant]
     Dosage: DOSE: UNK

REACTIONS (8)
  - ACCIDENTAL OVERDOSE [None]
  - BLOOD GLUCOSE DECREASED [None]
  - CARDIAC ARREST [None]
  - HYPERHIDROSIS [None]
  - HYPOGLYCAEMIC SEIZURE [None]
  - INCOHERENT [None]
  - MEDICATION ERROR [None]
  - TREMOR [None]
